FAERS Safety Report 5170208-9 (Version None)
Quarter: 2006Q4

REPORT INFORMATION
  Report Type: 
  Country: None (occurrence: None)
  Receive Date: 20061212
  Receipt Date: 20061129
  Transmission Date: 20070319
  Serious: Yes (Hospitalization)
  Sender: FDA-Public Use
  Company Number: AU-ELI_LILLY_AND_COMPANY-AU200612000268

PATIENT
  Age: 54 Year
  Sex: Female

DRUGS (2)
  1. FLUOXETINE [Suspect]
     Indication: BIPOLAR I DISORDER
     Dosage: 100 MG, DAILY (1/D)
     Route: 048
     Dates: start: 20061101, end: 20061101
  2. EDRONAX [Concomitant]
     Dosage: 2 MG, UNK
     Dates: start: 20061101, end: 20061101

REACTIONS (3)
  - DELIRIUM [None]
  - INCONTINENCE [None]
  - PRESCRIBED OVERDOSE [None]
